FAERS Safety Report 17986013 (Version 5)
Quarter: 2023Q1

REPORT INFORMATION
  Report Type: Report from Study
  Country: JP (occurrence: JP)
  Receive Date: 20200707
  Receipt Date: 20230118
  Transmission Date: 20230417
  Serious: Yes (Hospitalization, Other)
  Sender: FDA-Public Use
  Company Number: JP-ONO-2020JP015189

PATIENT
  Age: 51 Year
  Sex: Male
  Weight: 98 kg

DRUGS (39)
  1. ETELCALCETIDE [Suspect]
     Active Substance: ETELCALCETIDE
     Indication: Hyperparathyroidism secondary
     Dosage: 5 MILLIGRAM, Q56H
     Route: 065
     Dates: start: 20190320, end: 20190517
  2. ETELCALCETIDE [Suspect]
     Active Substance: ETELCALCETIDE
     Dosage: 7.5 MILLIGRAM, Q56H
     Route: 065
     Dates: start: 20190520, end: 20200914
  3. ETELCALCETIDE [Suspect]
     Active Substance: ETELCALCETIDE
     Dosage: 10 MILLIGRAM, QWK
     Route: 065
     Dates: start: 20200916, end: 20201028
  4. ETELCALCETIDE [Suspect]
     Active Substance: ETELCALCETIDE
     Dosage: 7.5 MILLIGRAM, Q84H
     Route: 065
     Dates: start: 20200918, end: 20201026
  5. ETELCALCETIDE [Suspect]
     Active Substance: ETELCALCETIDE
     Dosage: 7.5 MILLIGRAM, Q84H
     Route: 065
     Dates: start: 20201030, end: 20201218
  6. ETELCALCETIDE [Suspect]
     Active Substance: ETELCALCETIDE
     Dosage: 7.5 MILLIGRAM, QWK
     Route: 065
     Dates: start: 20201104, end: 20201216
  7. ETELCALCETIDE [Suspect]
     Active Substance: ETELCALCETIDE
     Dosage: 10 MILLIGRAM, Q56H
     Route: 065
     Dates: start: 20201221, end: 20210115
  8. ETELCALCETIDE [Suspect]
     Active Substance: ETELCALCETIDE
     Dosage: 10  MILLIGRAM, Q84H
     Route: 065
     Dates: start: 20210118, end: 20210312
  9. ETELCALCETIDE [Suspect]
     Active Substance: ETELCALCETIDE
     Dosage: 12.5 MILLIGRAM, QWK
     Route: 065
     Dates: start: 20210120, end: 20210310
  10. ETELCALCETIDE [Suspect]
     Active Substance: ETELCALCETIDE
     Dosage: 12.5 MILLIGRAM, Q84H
     Route: 065
     Dates: start: 20210315, end: 20210917
  11. ETELCALCETIDE [Suspect]
     Active Substance: ETELCALCETIDE
     Dosage: 10 MILLIGRAM, QWK
     Route: 065
     Dates: start: 20210317, end: 20210915
  12. ETELCALCETIDE [Suspect]
     Active Substance: ETELCALCETIDE
     Dosage: 12.5 MILLIGRAM, Q56H
     Route: 065
     Dates: start: 20210920
  13. DARBEPOETIN ALFA [Concomitant]
     Active Substance: DARBEPOETIN ALFA
     Dosage: 5 MICROGRAM, Q4WK
     Route: 065
     Dates: end: 20200615
  14. DARBEPOETIN ALFA [Concomitant]
     Active Substance: DARBEPOETIN ALFA
     Dosage: 10 MICROGRAM, Q4WK
     Dates: start: 20200706, end: 20210705
  15. MAXACALCITOL [Concomitant]
     Active Substance: MAXACALCITOL
     Dosage: 5 MICROGRAM
     Route: 042
     Dates: end: 20190213
  16. MAXACALCITOL [Concomitant]
     Active Substance: MAXACALCITOL
     Dosage: 7.5 MICROGRAM, Q56H
     Route: 042
     Dates: start: 20190215, end: 20200907
  17. MAXACALCITOL [Concomitant]
     Active Substance: MAXACALCITOL
     Dosage: 5 MICROGRAM, QW
     Route: 042
     Dates: start: 20200909, end: 20210623
  18. MAXACALCITOL [Concomitant]
     Active Substance: MAXACALCITOL
     Dosage: 7.5 MICROGRAM, Q84H
     Route: 042
     Dates: start: 20200911, end: 20210628
  19. MAXACALCITOL [Concomitant]
     Active Substance: MAXACALCITOL
     Dosage: 7.5 MICROGRAM, QWK
     Dates: start: 20210630, end: 20210818
  20. MAXACALCITOL [Concomitant]
     Active Substance: MAXACALCITOL
     Dosage: 5 MICROGRAM, Q84H
     Dates: start: 20210702, end: 20210820
  21. MAXACALCITOL [Concomitant]
     Active Substance: MAXACALCITOL
     Dosage: 5 MICROGRAM, Q56H
     Dates: start: 20210823, end: 20211015
  22. MAXACALCITOL [Concomitant]
     Active Substance: MAXACALCITOL
     Dosage: 5 MICROGRAM, Q84H
     Dates: start: 20211018, end: 20220114
  23. MAXACALCITOL [Concomitant]
     Active Substance: MAXACALCITOL
     Dosage: 7.5 MICROGRAM, QW
     Dates: start: 20211020, end: 20220112
  24. MAXACALCITOL [Concomitant]
     Active Substance: MAXACALCITOL
     Dosage: 7.5 MICROGRAM, Q84H
     Dates: start: 20220117, end: 20221118
  25. MAXACALCITOL [Concomitant]
     Active Substance: MAXACALCITOL
     Dosage: 5 MICROGRAM, QWK
     Dates: start: 20220119, end: 20221116
  26. MAXACALCITOL [Concomitant]
     Active Substance: MAXACALCITOL
     Dosage: 5 MICROGRAM, Q84H
     Dates: start: 20221121
  27. BIXALOMER [Concomitant]
     Active Substance: BIXALOMER
     Dosage: 1000 MILLIGRAM, QD
     Route: 048
     Dates: end: 20210212
  28. BIXALOMER [Concomitant]
     Active Substance: BIXALOMER
     Dosage: 2000 MILLIGRAM, QWK
     Route: 048
     Dates: end: 20210211
  29. BIXALOMER [Concomitant]
     Active Substance: BIXALOMER
     Dosage: 1500 MILLIGRAM, QD
     Route: 048
     Dates: start: 20210213, end: 20210527
  30. FERRIC CITRATE ANHYDROUS [Concomitant]
     Active Substance: FERRIC CITRATE ANHYDROUS
     Dosage: 500 MILLIGRAM, QD
     Route: 065
     Dates: end: 20190327
  31. FOSRENOL [Concomitant]
     Active Substance: LANTHANUM CARBONATE
     Dosage: 500 MILLIGRAM, QD
     Route: 048
     Dates: start: 20190327
  32. FOSRENOL [Concomitant]
     Active Substance: LANTHANUM CARBONATE
     Dosage: 1000 MILLIGRAM, QWK
     Route: 048
     Dates: end: 20210211
  33. Fesin [Concomitant]
     Dosage: 40 MILLIGRAM, QWK
     Route: 065
     Dates: start: 20200817, end: 20201005
  34. P-tol [Concomitant]
     Dosage: 1500 MILLIGRAM, QD
     Route: 048
     Dates: start: 20210528, end: 20210819
  35. RENAGEL [Concomitant]
     Active Substance: SEVELAMER HYDROCHLORIDE
     Dosage: 1500 MILLIGRAM, QD
     Route: 048
     Dates: start: 20211029, end: 20211223
  36. RENAGEL [Concomitant]
     Active Substance: SEVELAMER HYDROCHLORIDE
     Dosage: 9000 MILLIGRAM, QWK
     Dates: start: 20211224
  37. LANTHANUM CARBONATE [Concomitant]
     Active Substance: LANTHANUM CARBONATE
     Dosage: 750 MILLIGRAM, QD
     Route: 048
     Dates: start: 20210213, end: 20210819
  38. LANTHANUM CARBONATE [Concomitant]
     Active Substance: LANTHANUM CARBONATE
     Dosage: 1500 MILLIGRAM, QD
     Dates: start: 20210820, end: 20211223
  39. LANTHANUM CARBONATE [Concomitant]
     Active Substance: LANTHANUM CARBONATE
     Dosage: 9000 MILLIGRAM, QWK
     Dates: start: 20211224

REACTIONS (6)
  - Diverticulitis [Recovered/Resolved]
  - Large intestine polyp [Recovering/Resolving]
  - Anal abscess [Recovering/Resolving]
  - Trigger finger [Not Recovered/Not Resolved]
  - Dermal cyst [Recovering/Resolving]
  - Carpal tunnel syndrome [Not Recovered/Not Resolved]

NARRATIVE: CASE EVENT DATE: 20190612
